FAERS Safety Report 24292973 (Version 1)
Quarter: 2024Q3

REPORT INFORMATION
  Report Type: Spontaneous
  Country: US (occurrence: None)
  Receive Date: 20240906
  Receipt Date: 20240906
  Transmission Date: 20241016
  Serious: No
  Sender: DOMPE FARMACEUTICI
  Company Number: US-FARMAPROD-202311-3307

PATIENT
  Age: 78 Year
  Sex: Female

DRUGS (18)
  1. OXERVATE [Suspect]
     Active Substance: CENEGERMIN-BKBJ
     Indication: Neurotrophic keratopathy
     Route: 047
     Dates: start: 20231105
  2. PRALUENT [Concomitant]
     Active Substance: ALIROCUMAB
     Route: 058
  3. LINZESS [Concomitant]
     Active Substance: LINACLOTIDE
  4. BUMETANIDE [Concomitant]
     Active Substance: BUMETANIDE
  5. LEVOTHYROXINE SODIUM [Concomitant]
     Active Substance: LEVOTHYROXINE SODIUM
  6. CALCIUM\CHOLECALCIFEROL [Concomitant]
     Active Substance: CALCIUM\CHOLECALCIFEROL
     Dosage: 600MG-12.5MG
  7. PROGESTERONE [Concomitant]
     Active Substance: PROGESTERONE
  8. CARBAMAZEPINE [Concomitant]
     Active Substance: CARBAMAZEPINE
  9. POTASSIUM CHLORIDE [Concomitant]
     Active Substance: POTASSIUM CHLORIDE
  10. ENTRESTO [Concomitant]
     Active Substance: SACUBITRIL\VALSARTAN
     Dosage: 49 MG-51 MG
  11. FAMCICLOVIR [Concomitant]
     Active Substance: FAMCICLOVIR
  12. NEBIVOLOL [Concomitant]
     Active Substance: NEBIVOLOL
  13. EZETIMIBE [Concomitant]
     Active Substance: EZETIMIBE
  14. XARELTO [Concomitant]
     Active Substance: RIVAROXABAN
  15. GABAPENTIN [Concomitant]
     Active Substance: GABAPENTIN
  16. GABAPENTIN [Concomitant]
     Active Substance: GABAPENTIN
  17. RESTASIS [Concomitant]
     Active Substance: CYCLOSPORINE
  18. SYSTANE HYDRATION PF [Concomitant]

REACTIONS (2)
  - Wrong technique in product usage process [Unknown]
  - Device use issue [Unknown]

NARRATIVE: CASE EVENT DATE: 20231105
